FAERS Safety Report 5092886-5 (Version None)
Quarter: 2006Q3

REPORT INFORMATION
  Report Type: 
  Country: None (occurrence: None)
  Receive Date: 20060828
  Receipt Date: 20060817
  Transmission Date: 20061208
  Serious: Yes (Hospitalization, Other)
  Sender: FDA-Public Use
  Company Number: S06-USA-03204-01

PATIENT
  Sex: Female

DRUGS (3)
  1. LEXAPRO [Suspect]
     Indication: DEPRESSION
     Dosage: 5 MG QD PO
     Route: 048
     Dates: start: 20060101
  2. EFFEXOR [Suspect]
     Indication: DEPRESSION
     Dates: end: 20060101
  3. MULTIPLE MEDICATIONS [Concomitant]

REACTIONS (3)
  - COAGULOPATHY [None]
  - HYPERTENSION [None]
  - TRANSIENT ISCHAEMIC ATTACK [None]
